FAERS Safety Report 9714772 (Version 1)
Quarter: 2013Q4

REPORT INFORMATION
  Report Type: Spontaneous
  Country: CA (occurrence: CA)
  Receive Date: 20131126
  Receipt Date: 20131126
  Transmission Date: 20140711
  Serious: Yes (Other)
  Sender: FDA-Public Use
  Company Number: CA-MYLANLABS-2013S1026181

PATIENT
  Age: 69 Year
  Sex: Male

DRUGS (3)
  1. AMIODARONE [Suspect]
     Indication: ATRIAL FIBRILLATION
     Route: 065
  2. PREDNISONE [Suspect]
     Indication: HYPERTHYROIDISM
     Dosage: 40 MG/D FOR A WEEK; THEN TAPERING GRADUALLY EVERY WEEK
     Route: 065
  3. PREDNISONE [Suspect]
     Indication: HYPERTHYROIDISM
     Dosage: 15 MG/D
     Route: 065

REACTIONS (4)
  - Hyperthyroidism [Recovered/Resolved]
  - Atrial fibrillation [Recovered/Resolved]
  - Oedema peripheral [Unknown]
  - Weight increased [Unknown]
